FAERS Safety Report 10966537 (Version 1)
Quarter: 2015Q1

REPORT INFORMATION
  Report Type: Spontaneous
  Country: US (occurrence: US)
  Receive Date: 20150330
  Receipt Date: 20150330
  Transmission Date: 20150721
  Serious: Yes (Hospitalization, Disabling, Other)
  Sender: FDA-Public Use
  Company Number: US-EMD SERONO-7136593

PATIENT
  Age: 76 Year
  Sex: Female

DRUGS (1)
  1. REBIF [Suspect]
     Active Substance: INTERFERON BETA-1A
     Indication: MULTIPLE SCLEROSIS
     Route: 058
     Dates: start: 20081028

REACTIONS (5)
  - Muscular weakness [Not Recovered/Not Resolved]
  - Femur fracture [Recovered/Resolved]
  - Muscle spasms [Not Recovered/Not Resolved]
  - Fall [Unknown]
  - Dysstasia [Not Recovered/Not Resolved]

NARRATIVE: CASE EVENT DATE: 201204
